FAERS Safety Report 5281287-2 (Version None)
Quarter: 2007Q1

REPORT INFORMATION
  Report Type: 
  Country: None (occurrence: None)
  Receive Date: 20061221
  Receipt Date: 20061014
  Transmission Date: 20070707
  Serious: No
  Sender: FDA-Public Use
  Company Number: SP01003

PATIENT
  Age: 58 Year
  Sex: Female
  Weight: 58.0604 kg

DRUGS (7)
  1. XIFAXAN [Suspect]
     Indication: GASTROINTESTINAL INFECTION
     Dosage: 200 MG/BID, ORAL
     Route: 048
     Dates: start: 20061011
  2. XIFAXAN [Suspect]
     Indication: OVERGROWTH BACTERIAL
     Dosage: 200 MG/BID, ORAL
     Route: 048
     Dates: start: 20061011
  3. VYTORIN [Concomitant]
  4. THYROID SUPPLEMENT [Concomitant]
  5. NEFAZONE [Concomitant]
  6. PERCOCET [Concomitant]
  7. DARVON [Concomitant]

REACTIONS (7)
  - FOOD INTOLERANCE [None]
  - HERPES SIMPLEX [None]
  - INFLUENZA LIKE ILLNESS [None]
  - MALAISE [None]
  - PAIN [None]
  - PYREXIA [None]
  - VOMITING [None]
